FAERS Safety Report 8778923 (Version 1)
Quarter: 2012Q4

REPORT INFORMATION
  Report Type: 
  Country: US (occurrence: US)
  Receive Date: 20120912
  Receipt Date: 20120912
  Transmission Date: 20130627
  Serious: Yes (Death)
  Sender: FDA-Public Use
  Company Number: PHEH2012US017547

PATIENT
  Sex: Male

DRUGS (11)
  1. TEKTURNA [Suspect]
     Indication: HYPERTENSION
     Dosage: 300 mg, daily
     Route: 048
  2. DIOVAN [Suspect]
     Indication: HYPERTENSION
     Dosage: 320 mg, daily
     Route: 048
  3. AMLODIPINE [Concomitant]
     Indication: HYPERTENSION
     Dosage: 10 mg, UNK
  4. BUMEX [Concomitant]
     Indication: HYPERTENSION
  5. HCT [Concomitant]
     Indication: FLUID RETENTION
     Dosage: 25 mg, UNK
  6. METFORMIN [Concomitant]
     Indication: DIABETES MELLITUS
     Dosage: 1000 mg, UNK
  7. METOPROLOL [Concomitant]
     Indication: HYPERTENSION
     Dosage: 100 mg, UNK
  8. POTASSIUM CHLORIDE [Concomitant]
     Indication: FLUID IMBALANCE
     Dosage: 20 MEq, UNK
  9. SIMVASTATIN [Concomitant]
     Indication: BLOOD CHOLESTEROL
     Dosage: 40 mg, UNK
  10. TERAZOSIN HYDROCHLORIDE [Concomitant]
     Indication: PROSTATIC DISORDER
     Dosage: 5 mg, UNK
  11. METRONIDAZOLE [Concomitant]
     Indication: INFECTION
     Dosage: 500 mg, ONCE/SINGLE

REACTIONS (1)
  - Road traffic accident [Fatal]
